FAERS Safety Report 16515851 (Version 5)
Quarter: 2021Q2

REPORT INFORMATION
  Report Type: Report from Study
  Country: KR (occurrence: KR)
  Receive Date: 20190702
  Receipt Date: 20210402
  Transmission Date: 20210716
  Serious: Yes (Hospitalization)
  Sender: FDA-Public Use
  Company Number: KR-PFIZER INC-2019272704

PATIENT
  Age: 38 Year
  Sex: Female
  Weight: 59 kg

DRUGS (46)
  1. CYTARABINE. [Suspect]
     Active Substance: CYTARABINE
     Indication: ACUTE MYELOID LEUKAEMIA
     Dosage: 162 MG (100 MG/M2), DAILY BY CONTINUOUS INFUSION
     Route: 041
     Dates: start: 20190603, end: 20190609
  2. TRIDOL [Concomitant]
     Active Substance: TRAMADOL HYDROCHLORIDE
     Indication: PYREXIA
  3. OXYNIUM [Concomitant]
     Indication: ABDOMINAL PAIN
     Dosage: UNK, AS NEEDED
     Dates: start: 20190611, end: 20190615
  4. IV?GLOBULIN [Concomitant]
     Indication: IMMUNE SYSTEM DISORDER
     Dosage: UNK
     Dates: start: 20190616, end: 20190624
  5. PREPENEM [Concomitant]
     Indication: PYREXIA
     Dosage: UNK
     Dates: start: 20190614
  6. ERDOS [Concomitant]
     Active Substance: ERDOSTEINE
     Indication: COUGH
     Dosage: UNK
     Dates: start: 20190616, end: 20190624
  7. TYLENOL ER [Concomitant]
     Active Substance: ACETAMINOPHEN
     Indication: PYREXIA
  8. LANSTON LFDT [Concomitant]
     Active Substance: LANSOPRAZOLE
     Indication: ABDOMINAL PAIN UPPER
     Dosage: 15 MG, UNK
     Dates: start: 20190607, end: 20190619
  9. TAZIME [Concomitant]
     Active Substance: CEFTAZIDIME
     Indication: FEBRILE NEUTROPENIA
     Dosage: UNK
     Dates: start: 20190612, end: 20190614
  10. CURAN [Concomitant]
     Active Substance: RANITIDINE HYDROCHLORIDE
     Indication: ABDOMINAL PAIN
  11. SYNATURA [Concomitant]
     Indication: COUGH
     Dosage: 50 ML, 1X/DAY
     Route: 048
     Dates: start: 20190614, end: 20190624
  12. MAXIPIME [Concomitant]
     Active Substance: CEFEPIME HYDROCHLORIDE
     Indication: PYREXIA
     Dosage: UNK
     Dates: start: 20190525, end: 20190602
  13. TYLENOL ER [Concomitant]
     Active Substance: ACETAMINOPHEN
     Indication: HEADACHE
     Dosage: UNK, AS NEEDED
     Dates: start: 20190612, end: 20190622
  14. SODIUM BICARBONATE. [Concomitant]
     Active Substance: SODIUM BICARBONATE
     Indication: PROPHYLAXIS
     Dosage: UNK
     Dates: start: 20190603, end: 20190610
  15. LASIX [Concomitant]
     Active Substance: FUROSEMIDE
     Dosage: UNK
     Dates: start: 20190604, end: 20190609
  16. LANSTON LFDT [Concomitant]
     Active Substance: LANSOPRAZOLE
     Indication: PROPHYLAXIS
  17. TANTUM [BENZYDAMINE HYDROCHLORIDE] [Concomitant]
     Indication: PROPHYLAXIS
     Dosage: UNK
     Dates: start: 20190607
  18. ZYLORIC [Concomitant]
     Active Substance: ALLOPURINOL
     Indication: PROPHYLAXIS
     Dosage: UNK
     Dates: start: 20190528, end: 20190609
  19. TRIDOL [Concomitant]
     Active Substance: TRAMADOL HYDROCHLORIDE
     Indication: ABDOMINAL PAIN
     Dosage: UNK
     Dates: start: 20190610, end: 20190610
  20. FREEPAN [HYOSCINE BUTYLBROMIDE] [Concomitant]
     Indication: ABDOMINAL PAIN
     Dosage: UNK
     Dates: start: 20190611, end: 20190611
  21. CORTISOLU [Concomitant]
     Active Substance: HYDROCORTISONE SODIUM SUCCINATE
     Indication: DYSPNOEA
     Dosage: UNK
     Dates: start: 20190529, end: 20190531
  22. MAXIPIME [Concomitant]
     Active Substance: CEFEPIME HYDROCHLORIDE
     Dosage: UNK
     Dates: start: 20190611, end: 20190611
  23. NOXAFIL [Concomitant]
     Active Substance: POSACONAZOLE
     Indication: INFECTION PROPHYLAXIS
     Dosage: UNK
     Dates: start: 20190602, end: 20190617
  24. LASIX [Concomitant]
     Active Substance: FUROSEMIDE
     Indication: OEDEMA
     Dosage: UNK
     Dates: start: 20190531, end: 20190531
  25. URSA [Concomitant]
     Active Substance: URSODIOL
     Indication: PROPHYLAXIS
     Dosage: UNK
     Dates: start: 20190606, end: 20190623
  26. PHOSTEN [Concomitant]
     Indication: PROPHYLAXIS
     Dosage: UNK
     Dates: start: 20190614, end: 20190614
  27. COFREL [Concomitant]
     Indication: COUGH
     Dosage: UNK
     Dates: start: 20190616, end: 20190619
  28. AZEPTIN [AZELASTINE] [Concomitant]
     Indication: RHINORRHOEA
     Dosage: UNK
     Dates: start: 20190525, end: 20190623
  29. PHENIRAMINE [Concomitant]
     Active Substance: PHENIRAMINE
     Indication: PREMEDICATION
     Dosage: UNK
     Dates: start: 20190531
  30. CODEINE [Concomitant]
     Active Substance: CODEINE
     Indication: COUGH
     Dosage: UNK
     Dates: start: 20190601, end: 20190610
  31. DAUNORUBICIN [Suspect]
     Active Substance: DAUNORUBICIN
     Indication: ACUTE MYELOID LEUKAEMIA
     Dosage: 97.2 MG (60MG/M2), DAILY BY CONTINUOUS INFUSION
     Route: 041
     Dates: start: 20190603, end: 20190605
  32. CORTISOLU [Concomitant]
     Active Substance: HYDROCORTISONE SODIUM SUCCINATE
     Indication: INFLAMMATION
     Dosage: UNK
     Dates: start: 20190611, end: 20190618
  33. ISEPAMICIN [Concomitant]
     Active Substance: ISEPAMICIN
     Indication: PYREXIA
     Dosage: UNK
     Dates: start: 20190611, end: 20190612
  34. OCUMETHOLONE [Concomitant]
     Indication: PROPHYLAXIS
     Dosage: UNK
     Dates: start: 20190603
  35. K?CONTIN [Concomitant]
     Indication: PROPHYLAXIS
     Dosage: UNK
     Dates: start: 20190607, end: 20190610
  36. TANTUM [BENZYDAMINE HYDROCHLORIDE] [Concomitant]
     Indication: ORAL MUCOSA HAEMATOMA
  37. CURAN [Concomitant]
     Active Substance: RANITIDINE HYDROCHLORIDE
     Indication: PROPHYLAXIS AGAINST GASTROINTESTINAL ULCER
     Dosage: 100 MG, 2X/DAY
     Route: 048
     Dates: start: 20190611, end: 20190621
  38. TRIDOL [Concomitant]
     Active Substance: TRAMADOL HYDROCHLORIDE
     Indication: HEADACHE
     Dosage: UNK
     Dates: start: 20190614, end: 20190617
  39. OXYNIUM [Concomitant]
     Indication: HEADACHE
  40. CYCIN [CIPROFLOXACIN HYDROCHLORIDE] [Concomitant]
     Indication: INFECTION PROPHYLAXIS
     Dosage: UNK
     Dates: start: 20190603, end: 20190610
  41. SMECTA [Concomitant]
     Active Substance: MONTMORILLONITE
     Indication: DIARRHOEA
     Dosage: UNK
     Dates: start: 20190613, end: 20190613
  42. HEPAMERZ [ORNITHINE ASPARTATE] [Concomitant]
     Indication: PROPHYLAXIS
     Dosage: UNK
     Dates: start: 20190616, end: 20190624
  43. PLACEBO [Suspect]
     Active Substance: UNSPECIFIED INGREDIENT
     Indication: ACUTE MYELOID LEUKAEMIA
     Dosage: ONCE DAILY CONTINUOUS
     Route: 048
     Dates: start: 20190603, end: 20190622
  44. MORPHINE [Concomitant]
     Active Substance: MORPHINE
     Indication: ABDOMINAL PAIN
     Dosage: UNK
     Dates: start: 20190610, end: 20190610
  45. TYLENOL ER [Concomitant]
     Active Substance: ACETAMINOPHEN
     Indication: FEBRILE NEUTROPENIA
     Dosage: UNK
     Dates: start: 20190529, end: 20190609
  46. COUGH SYRUP [AMMONIUM CHLORIDE;CHLORPHENAMINE MALEATE;DIHYDROCODEINE B [Concomitant]
     Indication: COUGH
     Dosage: UNK
     Dates: start: 20190525, end: 20190612

REACTIONS (1)
  - Atypical pneumonia [Not Recovered/Not Resolved]

NARRATIVE: CASE EVENT DATE: 20190617
